FAERS Safety Report 7361329-0 (Version None)
Quarter: 2011Q1

REPORT INFORMATION
  Report Type: 
  Country: None (occurrence: None)
  Receive Date: 20110318
  Receipt Date: 20110310
  Transmission Date: 20110831
  Serious: Yes (Death)
  Sender: FDA-Public Use
  Company Number: B0703399A

PATIENT
  Sex: Male

DRUGS (4)
  1. REVOLADE [Suspect]
     Indication: IDIOPATHIC THROMBOCYTOPENIC PURPURA
     Dosage: 12.5MG PER DAY
     Route: 048
     Dates: start: 20110218
  2. UNKNOWN DRUG [Concomitant]
     Route: 065
  3. UNKNOWN DRUG [Concomitant]
     Route: 065
  4. UNKNOWN DRUG [Concomitant]
     Route: 048

REACTIONS (1)
  - TUBERCULOSIS [None]
